FAERS Safety Report 10513401 (Version 4)
Quarter: 2015Q1

REPORT INFORMATION
  Report Type: Other
  Country: GB (occurrence: GB)
  Receive Date: 20141013
  Receipt Date: 20150304
  Transmission Date: 20150720
  Serious: Yes (Hospitalization, Other)
  Sender: FDA-Public Use
  Company Number: GB-SUN PHARMACEUTICAL INDUSTRIES LTD-2014SUN02160

PATIENT

DRUGS (1)
  1. BACLOFEN. [Suspect]
     Active Substance: BACLOFEN
     Indication: MUSCLE SPASTICITY
     Dosage: 2000 MICROG/ML, UNK
     Route: 037

REACTIONS (9)
  - Implant site swelling [Unknown]
  - Twiddler^s syndrome [Unknown]
  - Muscle spasticity [Unknown]
  - Drug withdrawal syndrome [Unknown]
  - Emotional distress [Unknown]
  - Cerebrospinal fluid leakage [Unknown]
  - Hypertonia [Unknown]
  - Underdose [Unknown]
  - Implant site extravasation [Unknown]
